FAERS Safety Report 9261636 (Version 2)
Quarter: 2013Q3

REPORT INFORMATION
  Report Type: Report from Study
  Country: DE (occurrence: DE)
  Receive Date: 20130429
  Receipt Date: 20130927
  Transmission Date: 20140515
  Serious: Yes (Hospitalization, Other)
  Sender: FDA-Public Use
  Company Number: DE-B.I. PHARMACEUTICALS,INC./RIDGEFIELD-2013-DE-01121DE

PATIENT
  Age: 33 Year
  Sex: Female
  Weight: 40 kg

DRUGS (1)
  1. DULCOLAX [Suspect]
     Dosage: 103 ANZ
     Route: 048
     Dates: start: 20130413

REACTIONS (5)
  - Drug abuse [Recovered/Resolved]
  - Hyperventilation [Recovered/Resolved]
  - Decreased appetite [Recovered/Resolved]
  - Blood potassium decreased [Recovered/Resolved]
  - Dehydration [Recovered/Resolved]
